FAERS Safety Report 9058321 (Version 1)
Quarter: 2012Q4

REPORT INFORMATION
  Report Type: Report from Study
  Country: US (occurrence: US)
  Receive Date: 20121002
  Receipt Date: 20121002
  Transmission Date: 20130627
  Serious: Yes (Other)
  Sender: FDA-Public Use
  Company Number: US-RB-031751-11

PATIENT
  Sex: Female

DRUGS (1)
  1. SUBUTEX [Suspect]
     Indication: PRODUCT USED FOR UNKNOWN INDICATION
     Dosage: Dose details not provided
     Route: 065

REACTIONS (3)
  - Abortion spontaneous [Recovered/Resolved]
  - Substance abuse [Not Recovered/Not Resolved]
  - Exposure during pregnancy [Recovered/Resolved]
